FAERS Safety Report 20603786 (Version 2)
Quarter: 2022Q1

REPORT INFORMATION
  Report Type: Spontaneous
  Country: NL (occurrence: NL)
  Receive Date: 20220316
  Receipt Date: 20220323
  Transmission Date: 20220423
  Serious: Yes (Other)
  Sender: FDA-Public Use
  Company Number: None

PATIENT
  Age: 23 Year
  Sex: Female

DRUGS (11)
  1. TOPAMAX [Suspect]
     Active Substance: TOPIRAMATE
     Indication: Post-traumatic epilepsy
     Dosage: 1X 1 PIECE
     Route: 048
     Dates: start: 202202
  2. TOPAMAX [Suspect]
     Active Substance: TOPIRAMATE
     Indication: Nightmare
  3. SEROQUEL [Concomitant]
     Active Substance: QUETIAPINE FUMARATE
     Dosage: 75MG TOTAL IN 3X25
  4. EBASTINE [Concomitant]
     Active Substance: EBASTINE
     Dosage: COATED TABLET, 10 MG (MILLIGRAMS)
     Route: 048
  5. PANTOPRAZOLE [Concomitant]
     Active Substance: PANTOPRAZOLE
     Dosage: GASTRO-RESISTANT TABLET, 20 MG (MILLIGRAMS)
     Route: 048
  6. SYMBICORT [Concomitant]
     Active Substance: BUDESONIDE\FORMOTEROL FUMARATE DIHYDRATE
     Dosage: INHALATION POWDER, 200/6 UG/DOSE (MICROGRAMS PER DOSE)
  7. METOPROLOL [Concomitant]
     Active Substance: METOPROLOL
     Dosage: TABLET, 50 MG (MILLIGRAM)
     Route: 048
  8. METHYLPHENIDATE HYDROCHLORIDE [Concomitant]
     Active Substance: METHYLPHENIDATE HYDROCHLORIDE
     Dosage: REGULATED RELEASE CAPSULE, 30 MG (MILLIGRAMS)
  9. ALUTARD SQ 2 DERMATOPHAGOIDES KVALSTER [Concomitant]
     Dosage: SUSPENSION FOR INJECTION
  10. MONTELUKAST [Concomitant]
     Active Substance: MONTELUKAST SODIUM
  11. VORTIOXETINE [Concomitant]
     Active Substance: VORTIOXETINE
     Dosage: TABLET, 20 MG (MILLIGRAM)

REACTIONS (5)
  - Bradycardia [Not Recovered/Not Resolved]
  - Visual impairment [Not Recovered/Not Resolved]
  - Hypotension [Recovering/Resolving]
  - Product used for unknown indication [Unknown]
  - Off label use [Unknown]

NARRATIVE: CASE EVENT DATE: 20220201
